FAERS Safety Report 14839589 (Version 1)
Quarter: 2018Q2

REPORT INFORMATION
  Report Type: Spontaneous
  Country: DK (occurrence: DK)
  Receive Date: 20180502
  Receipt Date: 20180502
  Transmission Date: 20180711
  Serious: Yes (Death, Congenital Anomaly)
  Sender: FDA-Public Use
  Company Number: PHHY2018DK076181

PATIENT
  Sex: Female

DRUGS (4)
  1. ZOFRAN ZYDIS LINGUAL [Concomitant]
     Indication: NAUSEA
     Dosage: 4 MG
     Route: 064
     Dates: start: 20170822, end: 20170922
  2. CRINONE [Concomitant]
     Active Substance: PROGESTERONE
     Indication: INFERTILITY
     Dosage: 1 DF, QD
     Route: 064
     Dates: start: 20170515, end: 20170922
  3. EMPERAL [Concomitant]
     Active Substance: METOCLOPRAMIDE HYDROCHLORIDE
     Indication: NAUSEA
     Dosage: 10 MG
     Route: 064
     Dates: start: 20170616, end: 20170822
  4. ALNOK [Suspect]
     Active Substance: CETIRIZINE HYDROCHLORIDE
     Indication: NAUSEA
     Dosage: 10 MG, QD
     Route: 064
     Dates: start: 20170628, end: 20170716

REACTIONS (2)
  - Ventricular septal defect [Fatal]
  - Foetal exposure during pregnancy [Fatal]

NARRATIVE: CASE EVENT DATE: 2017
